FAERS Safety Report 26007464 (Version 1)
Quarter: 2025Q4

REPORT INFORMATION
  Report Type: Spontaneous
  Country: EU (occurrence: EU)
  Receive Date: 20251106
  Receipt Date: 20251106
  Transmission Date: 20260117
  Serious: Yes (Other)
  Sender: MYLAN
  Company Number: None

PATIENT
  Age: 44 Year
  Sex: Male

DRUGS (16)
  1. BUPRENORPHINE [Suspect]
     Active Substance: BUPRENORPHINE
     Indication: Product used for unknown indication
     Dosage: UNK, QD (}-16 MG/DAY)
     Dates: start: 202505
  2. BUPRENORPHINE [Suspect]
     Active Substance: BUPRENORPHINE
     Dosage: UNK, QD (}-16 MG/DAY)
     Route: 060
     Dates: start: 202505
  3. BUPRENORPHINE [Suspect]
     Active Substance: BUPRENORPHINE
     Dosage: UNK, QD (}-16 MG/DAY)
     Route: 060
     Dates: start: 202505
  4. BUPRENORPHINE [Suspect]
     Active Substance: BUPRENORPHINE
     Dosage: UNK, QD (}-16 MG/DAY)
     Dates: start: 202505
  5. HEROIN [Suspect]
     Active Substance: DIAMORPHINE
     Indication: Product used for unknown indication
     Dosage: 1 GRAM, QD (1 G/DAY FOR 4 DAYS AT THE BEGINNING OF THE MONTH)
     Dates: start: 1995
  6. HEROIN [Suspect]
     Active Substance: DIAMORPHINE
     Dosage: 1 GRAM, QD (1 G/DAY FOR 4 DAYS AT THE BEGINNING OF THE MONTH)
     Route: 042
     Dates: start: 1995
  7. HEROIN [Suspect]
     Active Substance: DIAMORPHINE
     Dosage: 1 GRAM, QD (1 G/DAY FOR 4 DAYS AT THE BEGINNING OF THE MONTH)
     Route: 042
     Dates: start: 1995
  8. HEROIN [Suspect]
     Active Substance: DIAMORPHINE
     Dosage: 1 GRAM, QD (1 G/DAY FOR 4 DAYS AT THE BEGINNING OF THE MONTH)
     Dates: start: 1995
  9. COCAINE [Suspect]
     Active Substance: COCAINE
     Indication: Product used for unknown indication
     Dosage: 2 G AT THE BEGINNING OF THE MONTH
  10. COCAINE [Suspect]
     Active Substance: COCAINE
     Dosage: 2 G AT THE BEGINNING OF THE MONTH
     Route: 042
  11. COCAINE [Suspect]
     Active Substance: COCAINE
     Dosage: 2 G AT THE BEGINNING OF THE MONTH
     Route: 042
  12. COCAINE [Suspect]
     Active Substance: COCAINE
     Dosage: 2 G AT THE BEGINNING OF THE MONTH
  13. ALCOHOL [Suspect]
     Active Substance: ALCOHOL
     Indication: Product used for unknown indication
     Dosage: BETWEEN 1.5 AND 2 L/DAY (DRINK)
     Dates: start: 1993
  14. ALCOHOL [Suspect]
     Active Substance: ALCOHOL
     Dosage: BETWEEN 1.5 AND 2 L/DAY (DRINK)
     Route: 048
     Dates: start: 1993
  15. ALCOHOL [Suspect]
     Active Substance: ALCOHOL
     Dosage: BETWEEN 1.5 AND 2 L/DAY (DRINK)
     Route: 048
     Dates: start: 1993
  16. ALCOHOL [Suspect]
     Active Substance: ALCOHOL
     Dosage: BETWEEN 1.5 AND 2 L/DAY (DRINK)
     Dates: start: 1993

REACTIONS (2)
  - Substance use disorder [Not Recovered/Not Resolved]
  - Drug use disorder [Not Recovered/Not Resolved]
